FAERS Safety Report 10894090 (Version 1)
Quarter: 2015Q1

REPORT INFORMATION
  Report Type: Report from Study
  Country: JP (occurrence: JP)
  Receive Date: 20150306
  Receipt Date: 20150306
  Transmission Date: 20150721
  Serious: Yes (Hospitalization)
  Sender: FDA-Public Use
  Company Number: JP-SPECTRUM PHARMACEUTICALS, INC.-15-Z-JP-00091

PATIENT
  Age: 68 Year
  Sex: Female

DRUGS (4)
  1. ZEVALIN [Suspect]
     Active Substance: IBRITUMOMAB TIUXETAN
     Indication: FOLLICLE CENTRE LYMPHOMA, FOLLICULAR GRADE I, II, III STAGE I
     Dosage: 975 MBQ, SINGLE - 90Y
     Route: 042
     Dates: start: 20090728, end: 20090728
  2. ZEVALIN [Suspect]
     Active Substance: IBRITUMOMAB TIUXETAN
     Dosage: 130 MBQ, SINGLE - 111IN
     Route: 042
     Dates: start: 20090721, end: 20090721
  3. RITUXIMAB [Suspect]
     Active Substance: RITUXIMAB
     Indication: FOLLICLE CENTRE LYMPHOMA, FOLLICULAR GRADE I, II, III STAGE III
     Dosage: UNK UNK, SINGLE
     Dates: start: 20090728, end: 20090728
  4. RITUXIMAB [Suspect]
     Active Substance: RITUXIMAB
     Dosage: UNK UNK, SINGLE
     Dates: start: 20090721, end: 20090721

REACTIONS (1)
  - Uterine cancer [Recovering/Resolving]

NARRATIVE: CASE EVENT DATE: 20140909
